FAERS Safety Report 7564348-4 (Version None)
Quarter: 2011Q2

REPORT INFORMATION
  Report Type: 
  Country: None (occurrence: None)
  Receive Date: 20110622
  Receipt Date: 20110609
  Transmission Date: 20111010
  Serious: Yes (Other)
  Sender: FDA-Public Use
  Company Number: PHHY2011JP29436

PATIENT
  Age: 51 Year
  Sex: Male

DRUGS (2)
  1. DIOVAN HCT [Suspect]
     Indication: HYPERTENSION
     Dosage: 1 DF, DAILY
     Route: 048
     Dates: start: 20100408, end: 20110309
  2. EXFORGE [Concomitant]
     Dosage: 1 DF, UNK
     Route: 048
     Dates: start: 20110310

REACTIONS (2)
  - LIVER DISORDER [None]
  - GAMMA-GLUTAMYLTRANSFERASE INCREASED [None]
